FAERS Safety Report 8356815-0 (Version None)
Quarter: 2012Q1

REPORT INFORMATION
  Report Type: 
  Country: None (occurrence: None)
  Receive Date: 20120315
  Receipt Date: 20110216
  Transmission Date: 20120608
  Serious: Yes (Other)
  Sender: FDA-Public Use
  Company Number: PHHY2010US84234

PATIENT
  Age: 53 Year
  Sex: Female
  Weight: 111.1 kg

DRUGS (3)
  1. ANTIHYPERTENSIVE DRUGS (NO INGREDIENTS/SUBSTANCES) [Concomitant]
  2. GILENYA [Suspect]
     Indication: MULTIPLE SCLEROSIS
     Dosage: 0.5 MG, DAILY, ORAL
     Route: 048
     Dates: start: 20101203, end: 20110124
  3. ERGOTAMINE (ERGOTAMINE) [Concomitant]

REACTIONS (10)
  - RHINORRHOEA [None]
  - HEADACHE [None]
  - VISUAL IMPAIRMENT [None]
  - VISION BLURRED [None]
  - ABDOMINAL PAIN UPPER [None]
  - DIZZINESS [None]
  - MULTIPLE SCLEROSIS RELAPSE [None]
  - NAUSEA [None]
  - DECREASED APPETITE [None]
  - SINUSITIS [None]
